FAERS Safety Report 14606647 (Version 1)
Quarter: 2018Q1

REPORT INFORMATION
  Report Type: Spontaneous
  Country: US (occurrence: US)
  Receive Date: 20180307
  Receipt Date: 20180307
  Transmission Date: 20180509
  Serious: No
  Sender: FDA-Public Use
  Company Number: US-TEVA-772934ACC

PATIENT
  Age: 65 Year
  Sex: Female
  Weight: 83.99 kg

DRUGS (13)
  1. LAMOTRIGINE- CIPLA [Concomitant]
     Indication: AFFECTIVE DISORDER
     Dosage: 200 MILLIGRAM DAILY;
     Route: 048
  2. FOLIC ACID- TUALIT [Concomitant]
     Dosage: 1 MILLIGRAM DAILY;
     Route: 048
  3. METHADONE HCL-MALLIN [Concomitant]
     Indication: NEURALGIA
     Dosage: 20 MILLIGRAM DAILY;
     Route: 048
  4. CELECOXIB- TRIGEN [Concomitant]
     Indication: MUSCULOSKELETAL PAIN
     Dosage: 400 MILLIGRAM DAILY;
     Route: 048
  5. CELECOXIB- TRIGEN [Concomitant]
     Indication: BACK PAIN
  6. RISEDRONATE SODIUM. [Concomitant]
     Active Substance: RISEDRONATE SODIUM
     Indication: OSTEOPOROSIS
     Route: 048
  7. LEVOTHYROXINE- MYLAN [Concomitant]
     Indication: HYPOTHYROIDISM
     Dosage: 175 MICROGRAM DAILY;
     Route: 048
  8. NORCO [Concomitant]
     Active Substance: ACETAMINOPHEN\HYDROCODONE BITARTRATE
     Indication: PAIN
     Dosage: 10/325MG ONCE TO TWICE A DAY/TAKES ON AND OFF FOR 5 YEARS
     Route: 048
  9. GABAPENTIN. [Suspect]
     Active Substance: GABAPENTIN
     Indication: NEUROPATHY PERIPHERAL
     Dosage: 1200 MILLIGRAM DAILY;
     Route: 048
     Dates: start: 201703, end: 20170428
  10. METHADONE HCL-MALLIN [Concomitant]
     Indication: INTERVERTEBRAL DISC DISORDER
  11. XANAX [Concomitant]
     Active Substance: ALPRAZOLAM
     Indication: PANIC ATTACK
     Dosage: 1-2 TABLETS PER DAY
  12. LAMOTRIGINE- CIPLA [Concomitant]
     Indication: BIPOLAR DISORDER
  13. CELECOXIB- TRIGEN [Concomitant]
     Indication: ROTATOR CUFF SYNDROME

REACTIONS (2)
  - Drug ineffective [Unknown]
  - Alopecia [Not Recovered/Not Resolved]

NARRATIVE: CASE EVENT DATE: 201703
